FAERS Safety Report 13074335 (Version 8)
Quarter: 2018Q4

REPORT INFORMATION
  Report Type: Report from Study
  Country: CN (occurrence: CN)
  Receive Date: 20161230
  Receipt Date: 20181029
  Transmission Date: 20190204
  Serious: Yes (Death)
  Sender: FDA-Public Use
  Company Number: CN-ROCHE-1872033

PATIENT
  Age: 51 Year
  Sex: Male
  Weight: 52.5 kg

DRUGS (14)
  1. LACTULOSE. [Concomitant]
     Active Substance: LACTULOSE
     Indication: CONSTIPATION
     Route: 048
     Dates: start: 20161008
  2. OXYCODONE HYDROCHLORIDE. [Concomitant]
     Active Substance: OXYCODONE HYDROCHLORIDE
     Indication: PAIN
     Route: 065
     Dates: start: 20160916
  3. GLYCEROL [Concomitant]
     Active Substance: GLYCERIN
     Indication: CONSTIPATION
     Dosage: GLYCEROL ENEMA
     Route: 065
     Dates: start: 20161130
  4. PREGABALIN. [Concomitant]
     Active Substance: PREGABALIN
     Indication: PAIN
     Route: 065
     Dates: start: 20161024
  5. KAI SAI LU [Concomitant]
     Indication: CONSTIPATION
     Route: 065
     Dates: start: 20161008
  6. ENSURE [Concomitant]
     Active Substance: AMINO ACIDS\DEXTROSE\ELECTROLYTES NOS\SOYBEAN OIL\VITAMINS
     Indication: DECREASED APPETITE
     Route: 065
     Dates: start: 20161108
  7. VITAMIN C [Concomitant]
     Active Substance: ASCORBIC ACID
     Indication: DECREASED APPETITE
     Route: 065
     Dates: start: 20161201, end: 20161205
  8. MEGESTROL ACETATE. [Concomitant]
     Active Substance: MEGESTROL ACETATE
     Indication: DECREASED APPETITE
     Route: 065
     Dates: start: 20161130
  9. ZOLEDRONIC ACID [Concomitant]
     Active Substance: ZOLEDRONIC ACID
     Indication: METASTASES TO BONE
     Route: 065
     Dates: start: 201601
  10. AMINO ACID [Concomitant]
     Active Substance: AMINO ACIDS
     Indication: DECREASED APPETITE
     Route: 065
     Dates: start: 20161201, end: 20161205
  11. POTASSIUM CHLORIDE. [Concomitant]
     Active Substance: POTASSIUM CHLORIDE
     Indication: DECREASED APPETITE
     Route: 065
     Dates: start: 20161201, end: 20161205
  12. ATEZOLIZUMAB. [Suspect]
     Active Substance: ATEZOLIZUMAB
     Indication: OESOPHAGEAL CARCINOMA
     Dosage: MOST RECENT DOSE:25/OCT/2016
     Route: 042
     Dates: start: 20161025
  13. MORPHINE [Concomitant]
     Active Substance: MORPHINE
     Indication: PAIN
     Route: 065
     Dates: start: 20161024
  14. VITAMIN B6 [Concomitant]
     Active Substance: PYRIDOXINE HYDROCHLORIDE
     Indication: DECREASED APPETITE
     Route: 065
     Dates: start: 20161201, end: 20161205

REACTIONS (1)
  - Fistula [Fatal]

NARRATIVE: CASE EVENT DATE: 20161215
